FAERS Safety Report 9255665 (Version 5)
Quarter: 2013Q2

REPORT INFORMATION
  Report Type: Report from Study
  Country: US (occurrence: US)
  Receive Date: 20130425
  Receipt Date: 20130619
  Transmission Date: 20140414
  Serious: Yes (Death, Life-Threatening, Hospitalization)
  Sender: FDA-Public Use
  Company Number: PHHO2013US005351

PATIENT
  Age: 57 Year
  Sex: Female
  Weight: 49.4 kg

DRUGS (22)
  1. LBH589 [Suspect]
     Indication: PLASMA CELL MYELOMA
     Dosage: 20 MG, TIW
     Route: 048
     Dates: start: 20130318, end: 20130318
  2. DEXAMETHASONE SANDOZ [Suspect]
     Indication: PLASMA CELL MYELOMA
     Dosage: 4 MG, UNK
     Dates: start: 20130318, end: 20130318
  3. DEXAMETHASONE SANDOZ [Suspect]
     Dosage: 4 MG, UNK
     Dates: end: 20130404
  4. CARFILZOMIB [Suspect]
     Indication: PLASMA CELL MYELOMA
     Dosage: 30 MG (20 MG/M^2)
     Route: 042
     Dates: start: 20130318, end: 20130318
  5. CARFILZOMIB [Suspect]
     Dosage: 30 MG (20 MG/M^2)
     Route: 042
     Dates: end: 20130404
  6. ACYCLOVIR [Concomitant]
     Dosage: UNK
     Dates: start: 20110909, end: 20130405
  7. ERGOCALCIFEROL [Concomitant]
     Dosage: UNK
     Dates: start: 20110425, end: 20130412
  8. BIFIDOBACTERIUM INFANTIS [Concomitant]
     Dosage: UNK
     Dates: start: 20120430, end: 20130424
  9. OMEPRAZOLE [Concomitant]
     Dosage: UNK
     Dates: start: 20120604, end: 20130504
  10. HYDROMORPHONE [Concomitant]
     Dosage: UNK
     Dates: start: 20120821, end: 20130504
  11. POTASSIUM CHLORIDE [Concomitant]
     Dosage: UNK
     Dates: start: 20121024, end: 20130424
  12. SIMVASTATIN [Concomitant]
     Dosage: UNK
     Dates: start: 20130125, end: 20130409
  13. FLAGYL [Concomitant]
     Dosage: UNK
     Dates: start: 20130324, end: 20130409
  14. SERTRALINE [Concomitant]
     Dosage: UNK
     Dates: start: 20130125, end: 20130504
  15. OXYCODONE [Concomitant]
     Dosage: UNK
     Dates: start: 20130412, end: 20130424
  16. PROCHLORPERAZINE [Concomitant]
     Dosage: UNK
     Dates: start: 20120319, end: 20130504
  17. ZOLEDRONIC ACID [Concomitant]
     Dosage: UNK
     Dates: start: 20130320, end: 20130504
  18. GABAPENTIN [Concomitant]
     Dosage: UNK
     Dates: start: 20130404, end: 20130504
  19. OXYCODONE [Concomitant]
     Dosage: UNK
     Dates: start: 20130412, end: 20130424
  20. METHYLPHENIDATE [Concomitant]
     Dosage: UNK
     Dates: start: 20130412, end: 20130424
  21. MIRALAX [Concomitant]
     Dosage: UNK
     Dates: start: 20130412, end: 20130424
  22. PERI-COLACE [Concomitant]
     Dosage: UNK
     Dates: start: 20130412, end: 20130424

REACTIONS (4)
  - Haematemesis [Recovered/Resolved]
  - Hypercalcaemia [Recovered/Resolved]
  - Haemorrhagic stroke [Fatal]
  - Renal injury [Not Recovered/Not Resolved]
